FAERS Safety Report 4426534-1 (Version None)
Quarter: 2004Q3

REPORT INFORMATION
  Report Type: 
  Country: None (occurrence: None)
  Receive Date: 20040811
  Receipt Date: 20040727
  Transmission Date: 20050211
  Serious: Yes (Life-Threatening)
  Sender: FDA-Public Use
  Company Number: DE_040714021

PATIENT
  Age: 68 Year
  Sex: Male

DRUGS (11)
  1. XIGRIS [Suspect]
     Indication: SEPSIS
     Dosage: 24 UG;KG/HR
     Dates: start: 20040724, end: 20040728
  2. NORADRENALINE [Concomitant]
  3. DOBUTREX [Concomitant]
  4. AMIODARONE HCL [Concomitant]
  5. HYDROCORTISON [Concomitant]
  6. DIPIDOLOR (PIRITRAMIDE) [Concomitant]
  7. DORMICUM (MIDAZOLAM MALEATE) [Concomitant]
  8. ACTRAPID (NISULIN) [Concomitant]
  9. STAPHYLEX (FLUCLOXAXILLIN SODIUM) [Concomitant]
  10. ANTITHROMBIN III [Concomitant]
  11. ACETYLSALICYLIC ACID SRT [Concomitant]

REACTIONS (3)
  - MEDICATION ERROR [None]
  - PLATELET TRANSFUSION [None]
  - THROMBOCYTOPENIA [None]
